FAERS Safety Report 21865229 (Version 1)
Quarter: 2023Q1

REPORT INFORMATION
  Report Type: Report from Study
  Country: CA (occurrence: CA)
  Receive Date: 20230116
  Receipt Date: 20230116
  Transmission Date: 20230418
  Serious: Yes (Death, Hospitalization, Other)
  Sender: FDA-Public Use
  Company Number: CA-JNJFOC-20221100480

PATIENT
  Age: 86 Year
  Sex: Male

DRUGS (1)
  1. REMICADE [Suspect]
     Active Substance: INFLIXIMAB
     Indication: Colitis ulcerative
     Route: 041
     Dates: end: 20220929

REACTIONS (3)
  - Death [Fatal]
  - Neoplasm malignant [Unknown]
  - Intestinal operation [Unknown]

NARRATIVE: CASE EVENT DATE: 20221104
